FAERS Safety Report 25210892 (Version 4)
Quarter: 2025Q2

REPORT INFORMATION
  Report Type: Spontaneous
  Country: US (occurrence: US)
  Receive Date: 20250417
  Receipt Date: 20250516
  Transmission Date: 20250717
  Serious: No
  Sender: PFIZER
  Company Number: US-PFIZER INC-202500078111

PATIENT
  Age: 66 Year
  Sex: Female

DRUGS (1)
  1. PREMARIN [Suspect]
     Active Substance: ESTROGENS, CONJUGATED
     Indication: Hormone replacement therapy
     Dosage: 1.25 MG, 2X/DAY

REACTIONS (3)
  - Depression [Unknown]
  - Weight increased [Unknown]
  - Off label use [Unknown]
